FAERS Safety Report 8282268-7 (Version None)
Quarter: 2012Q2

REPORT INFORMATION
  Report Type: 
  Country: None (occurrence: None)
  Receive Date: 20120413
  Receipt Date: 20120405
  Transmission Date: 20120825
  Serious: Yes (Hospitalization)
  Sender: FDA-Public Use
  Company Number: US-JNJFOC-20120402865

PATIENT
  Sex: Female
  Weight: 95.26 kg

DRUGS (10)
  1. RISPERDAL [Suspect]
     Route: 048
  2. RISPERDAL [Suspect]
     Indication: BIPOLAR DISORDER
     Dosage: 1/2 OF A 2 MG TABLET
     Route: 048
  3. LORAZEPAM [Concomitant]
     Indication: SLEEP DISORDER
     Route: 048
  4. RISPERDAL [Suspect]
     Route: 048
     Dates: end: 20120101
  5. RISPERDAL [Suspect]
     Route: 048
     Dates: end: 20120101
  6. RISPERDAL [Suspect]
     Route: 048
  7. ABILIFY [Suspect]
     Indication: SCHIZOAFFECTIVE DISORDER
     Route: 048
  8. ABILIFY [Suspect]
     Indication: BIPOLAR DISORDER
     Route: 048
  9. RISPERDAL [Suspect]
     Indication: SCHIZOAFFECTIVE DISORDER
     Dosage: 1/2 OF A 2 MG TABLET
     Route: 048
  10. VITAMINS NOS [Concomitant]
     Indication: VITAMIN SUPPLEMENTATION
     Route: 048

REACTIONS (13)
  - SLOW SPEECH [None]
  - INJURY [None]
  - VICTIM OF CRIME [None]
  - TARDIVE DYSKINESIA [None]
  - HEAD INJURY [None]
  - ADVERSE EVENT [None]
  - WEIGHT INCREASED [None]
  - PRODUCT QUALITY ISSUE [None]
  - HYPOTONIA [None]
  - INSOMNIA [None]
  - MUSCULOSKELETAL STIFFNESS [None]
  - POSTURE ABNORMAL [None]
  - WRONG TECHNIQUE IN DRUG USAGE PROCESS [None]
